FAERS Safety Report 7059428-6 (Version None)
Quarter: 2010Q4

REPORT INFORMATION
  Report Type: 
  Country: None (occurrence: None)
  Receive Date: 20101025
  Receipt Date: 20101014
  Transmission Date: 20110411
  Serious: Yes (Other)
  Sender: FDA-Public Use
  Company Number: US-JNJFOC-20101005258

PATIENT
  Sex: Female
  Weight: 72.12 kg

DRUGS (3)
  1. DITROPAN XL [Suspect]
     Indication: INCONTINENCE
     Route: 048
  2. DITROPAN XL [Suspect]
     Indication: HYPERTONIC BLADDER
     Route: 048
  3. PROTONIX [Concomitant]
     Indication: GASTROOESOPHAGEAL REFLUX DISEASE
     Route: 048

REACTIONS (3)
  - CHROMATURIA [None]
  - CYSTITIS [None]
  - FAECES DISCOLOURED [None]
